FAERS Safety Report 5533128-3 (Version None)
Quarter: 2007Q4

REPORT INFORMATION
  Report Type: 
  Country: None (occurrence: None)
  Receive Date: 20071130
  Receipt Date: 20071130
  Transmission Date: 20080405
  Serious: Yes (Life-Threatening, Hospitalization)
  Sender: FDA-Public Use
  Company Number: None

PATIENT
  Age: 79 Year
  Sex: Female

DRUGS (4)
  1. WARFARIN SODIUM [Suspect]
     Indication: ANTICOAGULANT THERAPY
     Dosage: 4MG  DAILY  PO
     Route: 048
  2. ZOCOR [Concomitant]
  3. FOSAMAX [Concomitant]
  4. NIFEDIPINE [Concomitant]

REACTIONS (1)
  - SUBARACHNOID HAEMORRHAGE [None]
